FAERS Safety Report 9293012 (Version 1)
Quarter: 2013Q2

REPORT INFORMATION
  Report Type: Spontaneous
  Country: US (occurrence: None)
  Receive Date: 20130515
  Receipt Date: 20130515
  Transmission Date: 20140414
  Serious: Yes (Hospitalization, Disabling)
  Sender: FDA-Public Use
  Company Number: None

PATIENT
  Age: 61 Year
  Sex: Female
  Weight: 60.78 kg

DRUGS (1)
  1. ACTONEL [Suspect]
     Indication: OSTEOPENIA
     Route: 048
     Dates: start: 20050608, end: 20120413

REACTIONS (8)
  - Atypical femur fracture [None]
  - Foot fracture [None]
  - Back pain [None]
  - Gait disturbance [None]
  - Lower limb fracture [None]
  - Fracture delayed union [None]
  - Activities of daily living impaired [None]
  - Economic problem [None]
